FAERS Safety Report 15954781 (Version 1)
Quarter: 2019Q1

REPORT INFORMATION
  Report Type: Spontaneous
  Country: US (occurrence: US)
  Receive Date: 20190213
  Receipt Date: 20190213
  Transmission Date: 20190417
  Serious: Yes (Hospitalization, Other)
  Sender: FDA-Public Use
  Company Number: US-UNITED THERAPEUTICS-UNT-2019-002549

PATIENT
  Age: 57 Year
  Sex: Male

DRUGS (1)
  1. TYVASO [Suspect]
     Active Substance: TREPROSTINIL
     Indication: PULMONARY ARTERIAL HYPERTENSION
     Dosage: 54 ?G, QID
     Dates: start: 20181116

REACTIONS (4)
  - Haematemesis [Unknown]
  - Haematochezia [Unknown]
  - Blood glucose increased [Unknown]
  - Vein rupture [Unknown]

NARRATIVE: CASE EVENT DATE: 20190208
